FAERS Safety Report 26113948 (Version 1)
Quarter: 2025Q4

REPORT INFORMATION
  Report Type: Report from Study
  Country: EU (occurrence: EU)
  Receive Date: 20251202
  Receipt Date: 20251202
  Transmission Date: 20260118
  Serious: Yes (Life-Threatening, Other)
  Sender: KYOWA
  Company Number: EU-KYOWAKIRIN-2025KK023037

PATIENT

DRUGS (58)
  1. MOGAMULIZUMAB [Suspect]
     Active Substance: MOGAMULIZUMAB
     Indication: Cutaneous T-cell lymphoma stage IV
     Dosage: 89 MG, 1MG/KG, CYCLE 1 DAY 1
     Route: 065
     Dates: start: 20241129
  2. MOGAMULIZUMAB [Suspect]
     Active Substance: MOGAMULIZUMAB
     Dosage: 89 MG, 1MG/KG, CYCLE 1 DAY 8
     Route: 065
     Dates: start: 20241206
  3. MOGAMULIZUMAB [Suspect]
     Active Substance: MOGAMULIZUMAB
     Dosage: ( TREATMENT BREAK)CYCLE 1 DAY 15
     Route: 065
     Dates: start: 20241213
  4. MOGAMULIZUMAB [Suspect]
     Active Substance: MOGAMULIZUMAB
     Dosage: ( TREATMENT BREAK),CYCLE 1 DAY 22
     Route: 065
     Dates: start: 20241220
  5. MOGAMULIZUMAB [Suspect]
     Active Substance: MOGAMULIZUMAB
     Dosage: 89 MG, 1MG/KG,CYCLE 2 DAY 1
     Route: 065
     Dates: start: 20241227
  6. MOGAMULIZUMAB [Suspect]
     Active Substance: MOGAMULIZUMAB
     Dosage: 88 MG, 1MG/KG,CYCLE 2 DAY 15
     Route: 065
     Dates: start: 20250103
  7. MOGAMULIZUMAB [Suspect]
     Active Substance: MOGAMULIZUMAB
     Dosage: 88 MG, 1MG/KG,CYCLE 3 DAY 1
     Route: 065
     Dates: start: 20250117
  8. MOGAMULIZUMAB [Suspect]
     Active Substance: MOGAMULIZUMAB
     Dosage: 88 MG, 1MG/KG,CYCLE 3 DAY 15
     Route: 065
     Dates: start: 20250131
  9. MOGAMULIZUMAB [Suspect]
     Active Substance: MOGAMULIZUMAB
     Dosage: 89 MG, 1MG/KG,CYCLE 4 DAY 1
     Route: 065
     Dates: start: 20250214
  10. MOGAMULIZUMAB [Suspect]
     Active Substance: MOGAMULIZUMAB
     Dosage: (TREATMENT BREAK)CYCLE 4 DAY 15
     Route: 065
     Dates: start: 20250228
  11. MOGAMULIZUMAB [Suspect]
     Active Substance: MOGAMULIZUMAB
     Dosage: 90 MG, 1MG/KG,CYCLE 5 DAY 1
     Route: 065
     Dates: start: 20250319
  12. MOGAMULIZUMAB [Suspect]
     Active Substance: MOGAMULIZUMAB
     Dosage: 90 MG, 1MG/KG,CYCLE 5 DAY 15
     Route: 065
     Dates: start: 20250403
  13. MOGAMULIZUMAB [Suspect]
     Active Substance: MOGAMULIZUMAB
     Dosage: 90 MG, 1MG/KG,CYCLE 6 DAY 1
     Route: 065
     Dates: start: 20250417
  14. MOGAMULIZUMAB [Suspect]
     Active Substance: MOGAMULIZUMAB
     Dosage: 90 MG, 1MG/KG,CYCLE 6 DAY 15
     Route: 065
     Dates: start: 20250430
  15. MOGAMULIZUMAB [Suspect]
     Active Substance: MOGAMULIZUMAB
     Dosage: 90 MG, 1MG/KG, CYCLE 7 DAY 1
     Route: 065
     Dates: start: 20250515
  16. MOGAMULIZUMAB [Suspect]
     Active Substance: MOGAMULIZUMAB
     Dosage: 91 MG, 1MG/KG, CYCLE 7 DAY 15
     Route: 065
     Dates: start: 20250528
  17. MOGAMULIZUMAB [Suspect]
     Active Substance: MOGAMULIZUMAB
     Dosage: 91 MG, 1MG/KG, CYCLE 8 DAY 1
     Route: 065
     Dates: start: 20250611
  18. MOGAMULIZUMAB [Suspect]
     Active Substance: MOGAMULIZUMAB
     Dosage: 91 MG, 1MG/KG, CYCLE 8 DAY 15
     Route: 065
     Dates: start: 20250625
  19. MOGAMULIZUMAB [Suspect]
     Active Substance: MOGAMULIZUMAB
     Dosage: (TREATMENT BREAK) CYCLE 9 DAY 1
     Route: 065
     Dates: start: 20250710
  20. MOGAMULIZUMAB [Suspect]
     Active Substance: MOGAMULIZUMAB
     Dosage: 91 MG, 1MG/KG, CYCLE 9 DAY 15
     Route: 065
     Dates: start: 20250724
  21. MOGAMULIZUMAB [Suspect]
     Active Substance: MOGAMULIZUMAB
     Dosage: 86 MG, 1MG/KG, CYCLE 10 DAY 1
     Route: 065
     Dates: start: 20250815
  22. MOGAMULIZUMAB [Suspect]
     Active Substance: MOGAMULIZUMAB
     Dosage: ( TREATMENT BREAK) CYCLE 10 DAY 15
     Route: 065
     Dates: start: 20250829
  23. MOGAMULIZUMAB [Suspect]
     Active Substance: MOGAMULIZUMAB
     Dosage: 75 MG, 1MG/KG,CYCLE 11 DAY 1
     Route: 065
     Dates: start: 20251106
  24. ACETAMINOPHEN [Concomitant]
     Active Substance: ACETAMINOPHEN
     Indication: Product used for unknown indication
     Dosage: 1000 MG, PRN
     Route: 065
     Dates: start: 20241129, end: 20241129
  25. ACETAMINOPHEN [Concomitant]
     Active Substance: ACETAMINOPHEN
     Dosage: 1000 MG 4 TIMES PER DAY
     Route: 065
     Dates: start: 20250630, end: 20250914
  26. ACETAMINOPHEN [Concomitant]
     Active Substance: ACETAMINOPHEN
     Dosage: 100 MG, PRN
     Route: 065
     Dates: start: 20250824, end: 20250906
  27. DIMENHYDRINATE [Concomitant]
     Active Substance: DIMENHYDRINATE
     Indication: Product used for unknown indication
     Dosage: UNK, PRN
     Route: 065
     Dates: start: 20241129, end: 20241129
  28. DIMENHYDRINATE [Concomitant]
     Active Substance: DIMENHYDRINATE
     Dosage: 62 MG, PRN
     Route: 065
     Dates: start: 20250707, end: 20250707
  29. DIMENHYDRINATE [Concomitant]
     Active Substance: DIMENHYDRINATE
     Dosage: 50 MG, PRN
     Route: 065
     Dates: start: 20250905, end: 20250925
  30. LEVOTHYROXINE [Concomitant]
     Active Substance: LEVOTHYROXINE
     Indication: Product used for unknown indication
     Dosage: 0.09 MG, QD
     Route: 065
  31. NALTREXONE [Concomitant]
     Active Substance: NALTREXONE
     Indication: Cutaneous T-cell lymphoma
     Dosage: 50 MG, QD
     Route: 065
     Dates: end: 20250706
  32. GABAPENTIN [Concomitant]
     Active Substance: GABAPENTIN
     Indication: Cutaneous T-cell lymphoma
     Dosage: 300 MG, QD
     Route: 065
     Dates: end: 202508
  33. CETIRIZINE HYDROCHLORIDE [Concomitant]
     Active Substance: CETIRIZINE HYDROCHLORIDE
     Indication: Cutaneous T-cell lymphoma
     Dosage: 10 MG, QD
     Route: 065
     Dates: end: 202508
  34. PREDNISOLONE [Concomitant]
     Active Substance: PREDNISOLONE
     Indication: Product used for unknown indication
     Dosage: 50 MG, QD
     Route: 065
     Dates: start: 202201, end: 20250708
  35. PREDNISOLONE [Concomitant]
     Active Substance: PREDNISOLONE
     Dosage: 5 MG, QD
     Route: 065
     Dates: start: 20250619, end: 202508
  36. PREDNISOLONE [Concomitant]
     Active Substance: PREDNISOLONE
     Dosage: 150 MG, QD
     Route: 065
     Dates: start: 20250709, end: 202508
  37. PREDNISOLONE [Concomitant]
     Active Substance: PREDNISOLONE
     Dosage: 80 MG, QD
     Route: 065
     Dates: start: 20250710, end: 202508
  38. PREDNISOLONE [Concomitant]
     Active Substance: PREDNISOLONE
     Dosage: 100 MG, QD
     Route: 065
     Dates: start: 20250902, end: 20250911
  39. RIVAROXABAN [Concomitant]
     Active Substance: RIVAROXABAN
     Indication: Product used for unknown indication
     Dosage: 15 MG, BID
     Route: 065
     Dates: start: 20250220, end: 20250312
  40. RIVAROXABAN [Concomitant]
     Active Substance: RIVAROXABAN
     Dosage: 20 MG, QD
     Route: 065
     Dates: start: 20250313
  41. ACYCLOVIR [Concomitant]
     Active Substance: ACYCLOVIR
     Indication: Product used for unknown indication
     Dosage: 750 MG, TID
     Route: 065
     Dates: start: 20250630, end: 20250709
  42. PENICILLIN G [Concomitant]
     Active Substance: PENICILLIN G
     Indication: Product used for unknown indication
     Dosage: 10 MILLIONS I.E, TID
     Route: 065
     Dates: start: 20250630, end: 20250707
  43. POLYETHYLENE GLYCOLS [Concomitant]
     Active Substance: POLYETHYLENE GLYCOLS
     Indication: Prophylaxis
     Dosage: 25 ML, QD
     Route: 065
     Dates: start: 20250630, end: 20250710
  44. TAPENTADOL [Concomitant]
     Active Substance: TAPENTADOL
     Indication: Product used for unknown indication
     Dosage: 50 MG, QD
     Route: 065
     Dates: start: 20250704, end: 202508
  45. CLEMASTINE [Concomitant]
     Active Substance: CLEMASTINE
     Indication: Product used for unknown indication
     Dosage: 2 MG, QD
     Route: 065
     Dates: start: 20250709, end: 20250709
  46. ECPIRIN [Concomitant]
     Indication: Cutaneous T-cell lymphoma
     Dosage: UNK, 2 CYCLES OF 2 WEEKS, THEN 4 WEEKS
     Route: 065
     Dates: start: 20250710, end: 202508
  47. PANTOPRAZOLE [Concomitant]
     Active Substance: PANTOPRAZOLE
     Indication: Product used for unknown indication
     Dosage: 40 MG, PRN
     Route: 065
     Dates: start: 20250824, end: 20250925
  48. HYDROMORPHON HCL ACINO [Concomitant]
     Indication: Product used for unknown indication
     Dosage: 4 MG, QD
     Route: 065
     Dates: start: 20250825, end: 20250826
  49. HYDROMORPHON HCL ACINO [Concomitant]
     Dosage: 1.3 MG, FOUR TIMES A DAY
     Route: 065
     Dates: start: 20250825, end: 20250825
  50. PHYTONADIONE [Concomitant]
     Active Substance: PHYTONADIONE
     Indication: Product used for unknown indication
     Dosage: 10 MG, QD
     Route: 065
     Dates: start: 20250826, end: 20250826
  51. ELEKTROLYT [Concomitant]
     Indication: Product used for unknown indication
     Dosage: 500 ML, PRN
     Route: 065
     Dates: start: 20250825, end: 20250923
  52. ONDANSETRON [Concomitant]
     Active Substance: ONDANSETRON
     Indication: Product used for unknown indication
     Dosage: 8 MG, QD
     Route: 065
     Dates: start: 20250825, end: 20250825
  53. ENOXAPARIN SODIUM [Concomitant]
     Active Substance: ENOXAPARIN SODIUM
     Indication: Product used for unknown indication
     Dosage: 0.8 ML, PRN
     Route: 065
     Dates: start: 20250827, end: 20250917
  54. PIPERACILLIN AND TAZOBACTAM [Concomitant]
     Active Substance: PIPERACILLIN SODIUM\TAZOBACTAM SODIUM
     Indication: Product used for unknown indication
     Dosage: 45 MG, TID
     Route: 065
     Dates: start: 20250827, end: 20250829
  55. ENTECAVIR [Concomitant]
     Active Substance: ENTECAVIR
     Indication: Product used for unknown indication
     Dosage: 0.5 MG, QD
     Route: 065
     Dates: start: 20250827, end: 20250925
  56. MEPOLIZUMAB [Concomitant]
     Active Substance: MEPOLIZUMAB
     Indication: Product used for unknown indication
     Dosage: 300 MG, QD
     Route: 065
     Dates: start: 20251015, end: 20251015
  57. NEMOLIZUMAB [Concomitant]
     Active Substance: NEMOLIZUMAB
     Indication: Product used for unknown indication
     Dosage: 60 MG, QD
     Route: 065
     Dates: start: 20250724, end: 20250724
  58. NEMOLIZUMAB [Concomitant]
     Active Substance: NEMOLIZUMAB
     Dosage: 30 MG, QD
     Route: 065
     Dates: start: 20250924, end: 20250924

REACTIONS (1)
  - Tumour lysis syndrome [Recovered/Resolved]

NARRATIVE: CASE EVENT DATE: 20251114
